FAERS Safety Report 16596935 (Version 1)
Quarter: 2019Q3

REPORT INFORMATION
  Report Type: Spontaneous
  Country: US (occurrence: US)
  Receive Date: 20190718
  Receipt Date: 20190718
  Transmission Date: 20191004
  Serious: Yes (Disabling, Congenital Anomaly, Other)
  Sender: FDA-Public Use
  Company Number: None

PATIENT
  Age: 71 Year
  Sex: Male
  Weight: 85.5 kg

DRUGS (5)
  1. GLIPIZIDE 10 MG [Concomitant]
     Active Substance: GLIPIZIDE
  2. TORSEMIDE. [Concomitant]
     Active Substance: TORSEMIDE
  3. IRBESARTAN. [Concomitant]
     Active Substance: IRBESARTAN
  4. GLIPIZIDE 5 MG TABLET [Suspect]
     Active Substance: GLIPIZIDE
     Indication: DIABETES MELLITUS
     Dosage: ?          QUANTITY:180 TABLET(S);?
     Route: 048
  5. SERRAPEPTASE [Concomitant]
     Active Substance: SERRAPEPTASE

REACTIONS (1)
  - Mandibular mass [None]

NARRATIVE: CASE EVENT DATE: 20190524
